FAERS Safety Report 16461634 (Version 1)
Quarter: 2019Q2

REPORT INFORMATION
  Report Type: Report from Study
  Country: US (occurrence: US)
  Receive Date: 20190621
  Receipt Date: 20190621
  Transmission Date: 20190711
  Serious: Yes (Other)
  Sender: FDA-Public Use
  Company Number: US-ROCHE-2335632

PATIENT
  Sex: Female
  Weight: 71.28 kg

DRUGS (4)
  1. OCREVUS [Suspect]
     Active Substance: OCRELIZUMAB
     Dosage: ONGOING: YES
     Route: 042
     Dates: start: 20181231
  2. GABAPENTIN. [Concomitant]
     Active Substance: GABAPENTIN
     Indication: PAIN
     Dosage: TITRATION FROM 1 TO 3 TIMES PER DAY ;ONGOING: YES
     Route: 048
     Dates: start: 20181201
  3. OCREVUS [Suspect]
     Active Substance: OCRELIZUMAB
     Indication: RELAPSING-REMITTING MULTIPLE SCLEROSIS
     Route: 042
     Dates: start: 20181217
  4. VALTREX [Concomitant]
     Active Substance: VALACYCLOVIR HYDROCHLORIDE
     Indication: HERPES ZOSTER
     Dosage: FOR 6 MONTHS ;ONGOING: YES
     Route: 048
     Dates: start: 20181201

REACTIONS (1)
  - Herpes zoster [Unknown]
